FAERS Safety Report 21367878 (Version 1)
Quarter: 2022Q3

REPORT INFORMATION
  Report Type: Other
  Country: PT (occurrence: PT)
  Receive Date: 20220923
  Receipt Date: 20220923
  Transmission Date: 20221027
  Serious: Yes (Other)
  Sender: FDA-Public Use
  Company Number: PT-CELLTRION INC.-2022PT015220

PATIENT

DRUGS (3)
  1. HERZUMA [Suspect]
     Active Substance: TRASTUZUMAB-PKRB
     Indication: Breast cancer
     Dosage: 354 MILLIGRAM, CYCLIC
     Route: 065
     Dates: start: 20200930
  2. TUKYSA [Suspect]
     Active Substance: TUCATINIB
     Indication: Breast cancer
     Dosage: 300 MILLIGRAM, DAILY
     Route: 065
     Dates: start: 20220711
  3. CAPECITABINE [Suspect]
     Active Substance: CAPECITABINE
     Indication: Breast cancer
     Dosage: 1150 MG 2X DIA POR 14 DIAS EM CICLOS DE 21 DIAS
     Dates: start: 20200930

REACTIONS (4)
  - Alanine aminotransferase increased [Not Recovered/Not Resolved]
  - Lymphopenia [Not Recovered/Not Resolved]
  - Gamma-glutamyltransferase increased [Not Recovered/Not Resolved]
  - Aspartate aminotransferase increased [Not Recovered/Not Resolved]

NARRATIVE: CASE EVENT DATE: 20211230
